FAERS Safety Report 12074427 (Version 2)
Quarter: 2016Q2

REPORT INFORMATION
  Report Type: Spontaneous
  Country: US (occurrence: US)
  Receive Date: 20160212
  Receipt Date: 20160617
  Transmission Date: 20160815
  Serious: No
  Sender: FDA-Public Use
  Company Number: US-LUNDBECK-DKLU2008831

PATIENT
  Age: 2 Month
  Sex: Male

DRUGS (2)
  1. SABRIL [Suspect]
     Active Substance: VIGABATRIN
     Indication: INFANTILE SPASMS
     Route: 048
     Dates: start: 20151120
  2. SABRIL [Suspect]
     Active Substance: VIGABATRIN
     Indication: TUBEROUS SCLEROSIS

REACTIONS (1)
  - Product preparation error [Unknown]

NARRATIVE: CASE EVENT DATE: 201511
